FAERS Safety Report 19999454 (Version 1)
Quarter: 2021Q4

REPORT INFORMATION
  Report Type: Spontaneous
  Country: US (occurrence: US)
  Receive Date: 20211026
  Receipt Date: 20211026
  Transmission Date: 20220303
  Serious: No
  Sender: FDA-Public Use
  Company Number: US-BRACCO-2021US02883

PATIENT
  Sex: Male

DRUGS (1)
  1. MULTIHANCE [Suspect]
     Active Substance: GADOBENATE DIMEGLUMINE
     Indication: Magnetic resonance imaging
     Dosage: 19 ML, SINGLE
     Route: 042
     Dates: start: 20210701, end: 20210701

REACTIONS (4)
  - Presyncope [Unknown]
  - Cough [Unknown]
  - Nausea [Unknown]
  - Hyperhidrosis [Unknown]

NARRATIVE: CASE EVENT DATE: 20210701
